FAERS Safety Report 17111459 (Version 2)
Quarter: 2019Q4

REPORT INFORMATION
  Report Type: Spontaneous
  Country: GB (occurrence: GB)
  Receive Date: 20191204
  Receipt Date: 20191223
  Transmission Date: 20200122
  Serious: Yes (Hospitalization)
  Sender: FDA-Public Use
  Company Number: GB-JNJFOC-20191118512

PATIENT
  Age: 5 Year
  Sex: Male

DRUGS (30)
  1. SALINE                             /00075401/ [Concomitant]
     Active Substance: SODIUM CHLORIDE
     Dosage: STRENGTH: 0.9%, 60 UNIT DOSE, IN NEBULISER AS REQUIRED
  2. SCOPODERM                          /00008701/ [Concomitant]
     Active Substance: SCOPOLAMINE
     Dosage: STRENGTH: 1.5 MG, APPLY A THIRD OF A PATCH EVERY 72 HOURS, CAN BE INCREASED TO A HALF ADVISED BY DR
     Route: 065
  3. THIAMINE. [Concomitant]
     Active Substance: THIAMINE
     Dosage: STRENGTH: 100 MG/5ML, 200 ML
     Route: 048
  4. CIPROFLOXACIN. [Concomitant]
     Active Substance: CIPROFLOXACIN
     Dosage: STRENGTH: 250 MG/5 ML, EVERY 12 HOURS 08:00 AND 20:00, 400 ML
     Route: 048
  5. IBUPROFEN. [Concomitant]
     Active Substance: IBUPROFEN
     Dosage: STRENGTH: 100 MG/5 ML, SUGAR FREE, ONE 7.5 ML SPOONFUL TO BE TAKEN 3 TIMES IN A DAY
     Route: 048
  6. AZITHROMYCIN ANHYDROUS. [Concomitant]
     Active Substance: AZITHROMYCIN ANHYDROUS
     Dosage: STRENGTH: 200 MG/5 ML, 3.5 ML ON MON, TUE, WED OVER WINTER, 60 ML
     Route: 048
  7. OMEPRAZOLE. [Concomitant]
     Active Substance: OMEPRAZOLE
     Dosage: STRENGTH: 20MG/5 ML, 150 ML
     Route: 048
  8. TOPAMAX [Suspect]
     Active Substance: TOPIRAMATE
     Indication: SEIZURE
     Dosage: STRENGTH: 100 MG, AND 25 MG, 125 MG BD
     Route: 048
     Dates: start: 201509
  9. TOPAMAX [Suspect]
     Active Substance: TOPIRAMATE
     Dosage: STRENGTH: 25 MG, 60 TABLET
     Route: 048
  10. BECLOMETASONE [Concomitant]
     Active Substance: BECLOMETHASONE DIPROPIONATE
     Route: 045
  11. DICLOFENAC [Concomitant]
     Active Substance: DICLOFENAC
     Indication: PAIN
     Dosage: STRENGTH: 12.5 MG SUPPOSITORIES, AS ADVISED BY DR. INSTEAD OF IBUPROFEN, 10 SUPPOSITORY
     Route: 048
  12. CARMELLOSE [Concomitant]
     Dosage: STRENGTH: 0.5%, 0.4 ML UNIT DOSE, PRESERVATIVE FREE, 30 UNIT DOSE
     Route: 065
  13. CLOBAZAM. [Concomitant]
     Active Substance: CLOBAZAM
     Dosage: STRENGTH: 5 MG/5ML, SUGAR FREE, 150 ML
     Route: 048
  14. CLENIL MODULITE [Concomitant]
     Active Substance: BECLOMETHASONE DIPROPIONATE
     Dosage: STRENGTH: 100 MCG/DOSE INHALER, 1 PUFF ON TO SKIN 30 SECONDS BEFORE APPLYING HYOSCINE PATCH
  15. CHLORAL HYDRATE [Concomitant]
     Active Substance: CHLORAL HYDRATE
     Indication: EMOTIONAL DISTRESS
     Dosage: STRENGTH: 500 MG/5 ML, 100 ML
     Route: 048
  16. PARALDEHYDE [Concomitant]
     Active Substance: PARALDEHYDE
     Indication: SEIZURE
     Dosage: 50% IN OLIVE OIL RECTAL SOLUTION, 30 ML
  17. OSTEOCARE [Concomitant]
     Active Substance: CALCIUM\CHOLECALCIFEROL\MAGNESIUM\ZINC
     Dosage: 1X5 ML SPOONFUL A DAY AS ADVISED BY DIETICIAN, 200 ML
     Route: 048
  18. MORPHINE SULPHATE [Concomitant]
     Active Substance: MORPHINE SULFATE
     Indication: PAIN
     Dosage: STRENGTH: 10 MG/5 ML, 100 ML
     Route: 048
  19. GLYCEROL [Concomitant]
     Active Substance: GLYCERIN
     Dosage: STRENGTH: 1 G, 12 SUPPOSITORY
     Route: 065
  20. TOPAMAX [Suspect]
     Active Substance: TOPIRAMATE
     Dosage: STRENGTH: 100 MG, DISSOLVE IN 10 ML WATER AND GIVE 10 ML TWICE DAILY
     Route: 048
  21. UBICOR [Concomitant]
     Dosage: STRENGTH: 5 MG/ML, 1 ML (5 MG), 60 ML, THE SUSPENSION TO BE GIVEN TWICE DAILY
     Route: 048
  22. PARACETAMOL [Concomitant]
     Active Substance: ACETAMINOPHEN
     Dosage: STRENGTH: 120 MG/5 ML, PEDIATRIC SUGAR FREE, EVERY 4 TO 56 HOURS, 200 ML; AS REQUIRED
     Route: 048
  23. AMOXICILLIN. [Concomitant]
     Active Substance: AMOXICILLIN
     Dosage: STRENGTH: 125 MG/5 ML, SUGAR FREE, 3 TIMES A DAY FOR 7 DAYS, 100 ML
     Route: 048
  24. MOVICOL [Concomitant]
     Active Substance: POLYETHYLENE GLYCOL 3350\POTASSIUM CHLORIDE\SODIUM BICARBONATE\SODIUM CHLORIDE
     Dosage: STRENGTH: 6.9 G, ONE SACHET ONCE OR TWICE PER DAY, 30 SACHET
     Route: 048
  25. UBIDECARENONE [Concomitant]
     Active Substance: UBIDECARENONE
     Dosage: STRENGTH: 50 MG/5 ML, 500 ML
     Route: 048
  26. COLOMYCIN                          /00013203/ [Concomitant]
     Active Substance: COLISTIN SULFATE
     Dosage: STRENGTH: 1 MILLION UNIT POWDER FOR SOLUTION FOR INJECTION VIALS, 60 VIALS
  27. TOPAMAX [Suspect]
     Active Substance: TOPIRAMATE
     Dosage: STRENGTH: 100 MG, AND 25 MG, 125 MG B
     Route: 048
     Dates: start: 20190918
  28. BACLOFEN. [Concomitant]
     Active Substance: BACLOFEN
     Dosage: STRENGTH: 5 MG/5 ML, SUGAR FREE,300 ML
     Route: 048
  29. MUCOCLEAR                          /00075401/ [Concomitant]
     Dosage: STRENGTH: 3% INHALATIONAL SOLUTION 4 ML AMPOULES, 1-2 HOURLY USE AS REQUIRED, 60 AMPOULE
  30. KEPPRA [Concomitant]
     Active Substance: LEVETIRACETAM
     Dosage: STRENGTH: 100 MG/ML, 150 ML
     Route: 048

REACTIONS (6)
  - Malaise [Unknown]
  - Product packaging issue [Unknown]
  - Accidental exposure to product [Unknown]
  - Off label use [Unknown]
  - Wrong technique in product usage process [Unknown]
  - Vomiting [Recovered/Resolved]

NARRATIVE: CASE EVENT DATE: 201910
